FAERS Safety Report 9253728 (Version 2)
Quarter: 2013Q2

REPORT INFORMATION
  Report Type: Report from Study
  Country: GB (occurrence: GB)
  Receive Date: 20130425
  Receipt Date: 20130508
  Transmission Date: 20140414
  Serious: Yes (Other)
  Sender: FDA-Public Use
  Company Number: GB-ROCHE-1218257

PATIENT
  Sex: 0

DRUGS (5)
  1. ALTEPLASE [Suspect]
     Indication: RETINAL HAEMORRHAGE
     Dosage: 50 MCG IN 0.05 ML
     Route: 050
  2. ALTEPLASE [Suspect]
     Indication: OFF LABEL USE
  3. PERFLUTREN [Suspect]
     Indication: RETINAL HAEMORRHAGE
     Dosage: 0.3 ML OF 100%
     Route: 050
  4. PERFLUTREN [Suspect]
     Indication: OFF LABEL USE
  5. POVIDONE-IODINE [Concomitant]
     Indication: ANAESTHESIA

REACTIONS (1)
  - Intraocular pressure increased [Recovered/Resolved]
